FAERS Safety Report 5138332-4 (Version None)
Quarter: 2006Q4

REPORT INFORMATION
  Report Type: 
  Country: None (occurrence: None)
  Receive Date: 20061030
  Receipt Date: 20060824
  Transmission Date: 20070319
  Serious: No
  Sender: FDA-Public Use
  Company Number: US-GLAXOSMITHKLINE-A0618013A

PATIENT
  Age: 77 Year
  Sex: Female

DRUGS (9)
  1. ADVAIR HFA [Suspect]
     Indication: ASTHMA
     Dosage: 1PUFF TWICE PER DAY
     Route: 055
     Dates: start: 20060101
  2. ALBUTEROL [Concomitant]
  3. ATROVENT [Concomitant]
  4. PRAVACHOL [Concomitant]
  5. CARTIA XT [Concomitant]
  6. ASPIRIN [Concomitant]
  7. CENTRUM VITAMIN [Concomitant]
  8. HYDROCHLOROTHIAZIDE [Concomitant]
  9. ACCOLATE [Concomitant]

REACTIONS (3)
  - INCREASED APPETITE [None]
  - PHARMACEUTICAL PRODUCT COMPLAINT [None]
  - WEIGHT INCREASED [None]
